FAERS Safety Report 5167269-X (Version None)
Quarter: 2006Q4

REPORT INFORMATION
  Report Type: 
  Country: None (occurrence: None)
  Receive Date: 20061207
  Receipt Date: 20061026
  Transmission Date: 20070319
  Serious: Yes (Other)
  Sender: FDA-Public Use
  Company Number: JP-BOEHRINGER INGELHEIM PHARMACEUTICALS, INC.-2006-BP-12682YA

PATIENT
  Sex: Male
  Weight: 64 kg

DRUGS (10)
  1. HARNAL (TAMSULOSIN) ORODISPERSABLE CR [Suspect]
     Indication: BENIGN PROSTATIC HYPERPLASIA
     Route: 048
     Dates: end: 20060614
  2. HARNAL (TAMSULOSIN) ORODISPERSABLE CR [Suspect]
     Route: 048
     Dates: start: 20060707, end: 20060814
  3. HARNAL (TAMSULOSIN) ORODISPERSABLE CR [Suspect]
     Route: 048
     Dates: start: 20060823, end: 20060915
  4. HARNAL [Suspect]
     Indication: BENIGN PROSTATIC HYPERPLASIA
     Route: 048
     Dates: start: 20010101
  5. HARNAL [Suspect]
  6. ALLOPURINOL [Concomitant]
     Dates: end: 20060614
  7. CERNILTON [Concomitant]
     Dates: end: 20060614
  8. MYONAL [Concomitant]
     Dates: end: 20060614
  9. CYANOCOBALAMIN [Concomitant]
     Dates: end: 20060614
  10. LOXONIN [Concomitant]
     Dates: end: 20060614

REACTIONS (1)
  - DRUG ERUPTION [None]
